FAERS Safety Report 8473663-1 (Version None)
Quarter: 2012Q2

REPORT INFORMATION
  Report Type: 
  Country: None (occurrence: None)
  Receive Date: 20120628
  Receipt Date: 20110811
  Transmission Date: 20120825
  Serious: Yes (Death)
  Sender: FDA-Public Use
  Company Number: US-MYLANLABS-2011S1016819

PATIENT
  Age: 71 Year
  Sex: Male

DRUGS (9)
  1. EFFEXOR [Concomitant]
  2. PROMETHAZINE [Concomitant]
  3. PAROXETINE [Concomitant]
  4. OMEPRAZOLE [Concomitant]
  5. CLOZAPINE [Suspect]
     Route: 048
  6. CLOZAPINE [Suspect]
     Route: 048
  7. DUONEB [Concomitant]
  8. COGENTIN [Concomitant]
  9. ONDANSETRON (ZOFRAN) [Concomitant]

REACTIONS (1)
  - LUNG NEOPLASM MALIGNANT [None]
